FAERS Safety Report 20645282 (Version 1)
Quarter: 2022Q1

REPORT INFORMATION
  Report Type: Spontaneous
  Country: US (occurrence: US)
  Receive Date: 20220328
  Receipt Date: 20220328
  Transmission Date: 20220423
  Serious: Yes (Other)
  Sender: FDA-Public Use
  Company Number: US-PFIZER INC-202200412025

PATIENT
  Age: 62 Year
  Sex: Female

DRUGS (1)
  1. GENOTROPIN [Suspect]
     Active Substance: SOMATROPIN
     Dosage: ALTERNATING BETWEEN 0.2 MG AND 0.3 MG

REACTIONS (4)
  - Concussion [Unknown]
  - Hyperhidrosis [Unknown]
  - Muscular weakness [Unknown]
  - Intentional product misuse [Unknown]
